FAERS Safety Report 6747125-3 (Version None)
Quarter: 2010Q2

REPORT INFORMATION
  Report Type: 
  Country: None (occurrence: None)
  Receive Date: 20100528
  Receipt Date: 20100517
  Transmission Date: 20101027
  Serious: Yes (Other)
  Sender: FDA-Public Use
  Company Number: FR-PFIZER INC-2010061493

PATIENT
  Age: 33 Year
  Sex: Male

DRUGS (2)
  1. SOLU-MEDROL [Suspect]
     Indication: MULTIPLE SCLEROSIS
     Dosage: 1 G EVERY 4 MONTHS
     Dates: start: 20090101, end: 20100401
  2. TYSABRI [Concomitant]

REACTIONS (1)
  - VASCULITIS [None]
